FAERS Safety Report 21916586 (Version 1)
Quarter: 2023Q1

REPORT INFORMATION
  Report Type: Spontaneous
  Country: US (occurrence: None)
  Receive Date: 20230126
  Receipt Date: 20230126
  Transmission Date: 20230418
  Serious: Yes (Life-Threatening, Hospitalization)
  Sender: FDA-Public Use
  Company Number: None

PATIENT
  Age: 37 Year
  Sex: Female
  Weight: 105.75 kg

DRUGS (10)
  1. DICYCLOMINE [Suspect]
     Active Substance: DICYCLOMINE HYDROCHLORIDE
     Indication: Irritable bowel syndrome
     Dosage: OTHER QUANTITY : 1 TABLET(S);?
     Route: 048
     Dates: start: 20230123, end: 20230123
  2. METFORMIN [Concomitant]
     Active Substance: METFORMIN HYDROCHLORIDE
  3. CYMBALTA [Concomitant]
     Active Substance: DULOXETINE HYDROCHLORIDE
  4. Femotadine [Concomitant]
  5. COLACE [Concomitant]
     Active Substance: DOCUSATE SODIUM
  6. LINZESS [Concomitant]
     Active Substance: LINACLOTIDE
  7. Volaren [Concomitant]
  8. ZYRTEC [Concomitant]
     Active Substance: CETIRIZINE HYDROCHLORIDE
  9. VITAMINS [Concomitant]
     Active Substance: VITAMINS
  10. PROBIOTICS NOS [Concomitant]
     Active Substance: PROBIOTICS NOS

REACTIONS (15)
  - Hypersensitivity [None]
  - Dry mouth [None]
  - Fatigue [None]
  - Asthenia [None]
  - Hallucination [None]
  - Memory impairment [None]
  - Dizziness [None]
  - Fall [None]
  - Swollen tongue [None]
  - Chest discomfort [None]
  - Dyspnoea [None]
  - Dysphagia [None]
  - Eye swelling [None]
  - Rash [None]
  - Urticaria [None]

NARRATIVE: CASE EVENT DATE: 20230123
